FAERS Safety Report 16247386 (Version 1)
Quarter: 2019Q2

REPORT INFORMATION
  Report Type: Other
  Country: CN (occurrence: CN)
  Receive Date: 20190427
  Receipt Date: 20190427
  Transmission Date: 20190711
  Serious: Yes (Other)
  Sender: FDA-Public Use
  Company Number: CN-JIANGSU HENGRUI MEDICINE CO., LTD.-2066314

PATIENT
  Age: 70 Year
  Sex: Male
  Weight: 65 kg

DRUGS (4)
  1. SODIUM CHLORIDE. [Concomitant]
     Active Substance: SODIUM CHLORIDE
     Route: 041
     Dates: start: 20190314, end: 20190314
  2. CISPLATIN. [Suspect]
     Active Substance: CISPLATIN
     Route: 041
     Dates: start: 20190314, end: 20190314
  3. SODIUM CHLORIDE. [Concomitant]
     Active Substance: SODIUM CHLORIDE
     Route: 041
     Dates: end: 20190314
  4. DOCETAXEL INJECTION USP, 20 MG/1 ML, 80 MG/4 ML, AND 160 MG/8 ML (20 M [Suspect]
     Active Substance: DOCETAXEL
     Indication: CHEMOTHERAPY
     Route: 041
     Dates: start: 20190314, end: 20190314

REACTIONS (5)
  - Malaise [Recovering/Resolving]
  - White blood cell count decreased [Recovering/Resolving]
  - Amnesia [None]
  - Neutrophil count decreased [Recovering/Resolving]
  - Retrograde amnesia [None]

NARRATIVE: CASE EVENT DATE: 20190320
